FAERS Safety Report 23725967 (Version 1)
Quarter: 2024Q2

REPORT INFORMATION
  Report Type: Spontaneous
  Country: CA (occurrence: None)
  Receive Date: 20240410
  Receipt Date: 20240410
  Transmission Date: 20240716
  Serious: Yes (Other)
  Sender: FDA-Public Use
  Company Number: CA-ROCHE-3542505

PATIENT
  Age: 37 Year
  Sex: Female

DRUGS (16)
  1. PERJETA [Suspect]
     Active Substance: PERTUZUMAB
     Indication: Product used for unknown indication
     Route: 042
  2. ACETAMINOPHEN [Concomitant]
     Active Substance: ACETAMINOPHEN
  3. CIPROFLOXACIN [Concomitant]
     Active Substance: CIPROFLOXACIN
     Route: 048
  4. DEXAMETHASONE [Concomitant]
     Active Substance: DEXAMETHASONE
     Route: 048
  5. GOSERELIN ACETATE [Concomitant]
     Active Substance: GOSERELIN ACETATE
  6. HYDROMORPHONE [Concomitant]
     Active Substance: HYDROMORPHONE
     Route: 048
  7. HYDROMORPHONE [Concomitant]
     Active Substance: HYDROMORPHONE
     Dosage: SUSTAINEDRELEASE
  8. LEVETIRACETAM [Concomitant]
     Active Substance: LEVETIRACETAM
     Route: 065
  9. MILK OF MAGNESIA [Concomitant]
     Active Substance: MAGNESIUM HYDROXIDE
  10. ONDANSETRON [Concomitant]
     Active Substance: ONDANSETRON
  11. PEG 3350 [Concomitant]
     Active Substance: POLYETHYLENE GLYCOL 3350
     Route: 048
  12. RABEPRAZOLE [Concomitant]
     Active Substance: RABEPRAZOLE
  13. SENOKOT [Concomitant]
     Active Substance: SENNOSIDES
  14. TINZAPARIN [Concomitant]
     Active Substance: TINZAPARIN
  15. TRANEXAMIC ACID [Concomitant]
     Active Substance: TRANEXAMIC ACID
  16. TRASTUZUMAB [Concomitant]
     Active Substance: TRASTUZUMAB

REACTIONS (3)
  - Chills [Recovered/Resolved]
  - Pyrexia [Recovered/Resolved]
  - Tachycardia [Recovered/Resolved]
